FAERS Safety Report 18801166 (Version 1)
Quarter: 2021Q1

REPORT INFORMATION
  Report Type: Report from Study
  Country: US (occurrence: US)
  Receive Date: 20210128
  Receipt Date: 20210128
  Transmission Date: 20210419
  Serious: Yes (Hospitalization, Other)
  Sender: FDA-Public Use
  Company Number: US-BAYER-2021-030749

PATIENT
  Age: 62 Year
  Sex: Male
  Weight: 135.15 kg

DRUGS (1)
  1. STIVARGA [Suspect]
     Active Substance: REGORAFENIB
     Indication: COLON CANCER
     Dosage: 80 MG, QD (EVERY MORNING FOR 21 DAYS ON 7 DAYS OFF)
     Dates: start: 20210107

REACTIONS (9)
  - Pyrexia [Recovering/Resolving]
  - Nausea [None]
  - Fatigue [None]
  - Product dose omission issue [None]
  - Off label use [None]
  - Burning sensation [None]
  - Headache [None]
  - Feeling cold [None]
  - Sepsis [None]

NARRATIVE: CASE EVENT DATE: 202101
